FAERS Safety Report 19225964 (Version 1)
Quarter: 2021Q2

REPORT INFORMATION
  Report Type: Report from Study
  Country: BE (occurrence: BE)
  Receive Date: 20210506
  Receipt Date: 20210506
  Transmission Date: 20210717
  Serious: Yes (Hospitalization)
  Sender: FDA-Public Use
  Company Number: BE-ROCHE-2546951

PATIENT
  Age: 58 Year
  Sex: Male
  Weight: 60.2 kg

DRUGS (20)
  1. ORS [GLUCOSE;POTASSIUM CHLORIDE;SODIUM CHLORIDE;SODIUM CITRATE] [Concomitant]
  2. DUROGESIC [Concomitant]
     Active Substance: FENTANYL
  3. ATEZOLIZUMAB. [Suspect]
     Active Substance: ATEZOLIZUMAB
     Indication: HORMONE-REFRACTORY PROSTATE CANCER
     Dosage: ON 19/JAN/2020, HE RECEIVED MOST RECENT DOSE OF ATEZOLIZUMAB PRIOR TO ADVERSE EVENT.
     Route: 042
     Dates: start: 20191220
  4. SERLAIN [Concomitant]
     Active Substance: SERTRALINE HYDROCHLORIDE
  5. PARACETAMOL [Concomitant]
     Active Substance: ACETAMINOPHEN
  6. IBUPROFEN. [Concomitant]
     Active Substance: IBUPROFEN
  7. ULTRA?K [Concomitant]
  8. FLAMINAL [SODIUM ALGINATE] [Concomitant]
  9. INADINE [Concomitant]
  10. CABOZANTINIB [Suspect]
     Active Substance: CABOZANTINIB
     Indication: HORMONE-REFRACTORY PROSTATE CANCER
     Dosage: MOST RECENT DOSE OF CABOZANTINIB ON 02/JAN/2020.
     Route: 048
     Dates: start: 20191220
  11. LITICAN [Concomitant]
     Active Substance: ALIZAPRIDE HYDROCHLORIDE
  12. AMOXICILLINE PANPHARMA [Concomitant]
     Active Substance: AMOXICILLIN
     Dates: start: 20200113
  13. ASAFLOW [Concomitant]
     Active Substance: ASPIRIN
  14. OXYNORM [Concomitant]
     Active Substance: OXYCODONE HYDROCHLORIDE
  15. IMODIUM [Concomitant]
     Active Substance: LOPERAMIDE HYDROCHLORIDE
  16. DEPO ELIGARD [Concomitant]
  17. ZOLPIDEM [Concomitant]
     Active Substance: ZOLPIDEM TARTRATE
  18. NILSTAT [Concomitant]
     Active Substance: NYSTATIN
  19. PANTOMED (BELGIUM) [Concomitant]
     Active Substance: PANTOPRAZOLE SODIUM
  20. BISOPROLOL [Concomitant]
     Active Substance: BISOPROLOL

REACTIONS (2)
  - Immune-mediated enterocolitis [Recovered/Resolved with Sequelae]
  - Hypokalaemia [Not Recovered/Not Resolved]

NARRATIVE: CASE EVENT DATE: 20200103
